FAERS Safety Report 5583884-3 (Version None)
Quarter: 2008Q1

REPORT INFORMATION
  Report Type: 
  Country: None (occurrence: None)
  Receive Date: 20080102
  Receipt Date: 20080102
  Transmission Date: 20080703
  Serious: Yes (Other)
  Sender: FDA-Public Use
  Company Number: None

PATIENT
  Age: 43 Year
  Sex: Female
  Weight: 90.7194 kg

DRUGS (3)
  1. AVELOX [Suspect]
     Indication: SINUSITIS
     Dosage: 400MG  ONCE/DAY  PO
     Route: 048
     Dates: start: 20071011, end: 20071012
  2. BIRTH CONTROL PILLS [Concomitant]
  3. SYNTHROID [Concomitant]

REACTIONS (9)
  - ANXIETY [None]
  - BIPOLAR DISORDER [None]
  - CONDITION AGGRAVATED [None]
  - CONFUSIONAL STATE [None]
  - HALLUCINATION [None]
  - INSOMNIA [None]
  - NIGHTMARE [None]
  - PHOTOPHOBIA [None]
  - PRESSURE OF SPEECH [None]
